FAERS Safety Report 4831372-1 (Version None)
Quarter: 2005Q4

REPORT INFORMATION
  Report Type: 
  Country: None (occurrence: None)
  Receive Date: 20051118
  Receipt Date: 20051115
  Transmission Date: 20060501
  Serious: Yes (Hospitalization)
  Sender: FDA-Public Use
  Company Number: US-GLAXOSMITHKLINE-A0582384A

PATIENT
  Sex: Male

DRUGS (12)
  1. AVANDIA [Suspect]
     Dosage: 8MG PER DAY
     Route: 048
     Dates: start: 20020101
  2. COREG [Concomitant]
     Indication: DRUG USE FOR UNKNOWN INDICATION
     Dosage: .5TAB TWICE PER DAY
     Route: 048
     Dates: start: 20051101
  3. GLIPIZIDE [Concomitant]
  4. METOPROLOL [Concomitant]
     Dates: end: 20051101
  5. FUROSEMIDE [Concomitant]
  6. POTASSIUM [Concomitant]
  7. PREVACID [Concomitant]
  8. DIGITEK [Concomitant]
  9. VERAPAMIL [Concomitant]
  10. LIPITOR [Concomitant]
  11. PLAVIX [Concomitant]
  12. ATIVAN [Concomitant]

REACTIONS (3)
  - CARDIAC FAILURE CONGESTIVE [None]
  - DYSPNOEA [None]
  - MYOCARDIAL INFARCTION [None]
